FAERS Safety Report 5720972-2 (Version None)
Quarter: 2008Q2

REPORT INFORMATION
  Report Type: 
  Country: None (occurrence: None)
  Receive Date: 20080429
  Receipt Date: 20080425
  Transmission Date: 20081010
  Serious: Yes (Other)
  Sender: FDA-Public Use
  Company Number: US-BRISTOL-MYERS SQUIBB COMPANY-14165518

PATIENT
  Sex: Male

DRUGS (1)
  1. PRAVACHOL [Suspect]
     Dates: start: 19920101

REACTIONS (2)
  - RHABDOMYOLYSIS [None]
  - TENDON DISORDER [None]
